FAERS Safety Report 12726338 (Version 4)
Quarter: 2016Q4

REPORT INFORMATION
  Report Type: Spontaneous
  Country: US (occurrence: US)
  Receive Date: 20160908
  Receipt Date: 20161109
  Transmission Date: 20170207
  Serious: Yes (Death)
  Sender: FDA-Public Use
  Company Number: US-BAUSCH-BL-2016-021157

PATIENT
  Age: 73 Year
  Sex: Male

DRUGS (9)
  1. PLAVIX [Concomitant]
     Active Substance: CLOPIDOGREL BISULFATE
     Indication: PRODUCT USED FOR UNKNOWN INDICATION
     Dates: end: 201609
  2. OXICODONE [Concomitant]
     Indication: ARTHRITIS
     Dates: end: 201609
  3. TEMAZEPAM. [Concomitant]
     Active Substance: TEMAZEPAM
     Indication: SLEEP DISORDER
     Dates: end: 201609
  4. XIFAXAN [Suspect]
     Active Substance: RIFAXIMIN
     Indication: HEPATIC NEOPLASM
  5. XIFAXAN [Suspect]
     Active Substance: RIFAXIMIN
     Indication: MEMORY IMPAIRMENT
  6. RESTORIL [Concomitant]
     Active Substance: TEMAZEPAM
     Indication: PRODUCT USED FOR UNKNOWN INDICATION
     Route: 048
     Dates: end: 201609
  7. LACTULOSE. [Concomitant]
     Active Substance: LACTULOSE
     Indication: LIVER DISORDER
     Dates: end: 201609
  8. XIFAXAN [Suspect]
     Active Substance: RIFAXIMIN
     Indication: HEPATIC ENCEPHALOPATHY
     Route: 048
     Dates: start: 201603, end: 201609
  9. RANITIDINE. [Concomitant]
     Active Substance: RANITIDINE
     Indication: PRODUCT USED FOR UNKNOWN INDICATION
     Route: 048
     Dates: end: 201609

REACTIONS (3)
  - Weight decreased [Not Recovered/Not Resolved]
  - Decreased appetite [Not Recovered/Not Resolved]
  - Hepatic cancer [Fatal]

NARRATIVE: CASE EVENT DATE: 2016
